FAERS Safety Report 4705876-6 (Version None)
Quarter: 2005Q2

REPORT INFORMATION
  Report Type: 
  Country: None (occurrence: None)
  Receive Date: 20050629
  Receipt Date: 20050407
  Transmission Date: 20051028
  Serious: No
  Sender: FDA-Public Use
  Company Number: 05P-163-0296876-00

PATIENT
  Age: 64 Year
  Sex: Female
  Weight: 48.9885 kg

DRUGS (8)
  1. HUMIRA [Suspect]
     Indication: RHEUMATOID ARTHRITIS
     Dosage: 40 MG, 1 IN 2 WK, SUBCUTANEOUS
     Route: 058
     Dates: start: 20040301, end: 20041101
  2. NORGESIC [Concomitant]
  3. ASPIRIN [Concomitant]
  4. BISOPROLOL FUMARATE [Concomitant]
  5. ZETIA [Concomitant]
  6. DIAZEPAM [Concomitant]
  7. PREDNISONE TAB [Concomitant]
  8. ALBUTEROL SULFATE HFA [Concomitant]

REACTIONS (4)
  - BENIGN NEOPLASM OF SKIN [None]
  - DIABETES MELLITUS NON-INSULIN-DEPENDENT [None]
  - MALIGNANT MELANOMA [None]
  - WEIGHT DECREASED [None]
